FAERS Safety Report 24912059 (Version 2)
Quarter: 2025Q1

REPORT INFORMATION
  Report Type: Spontaneous
  Country: US (occurrence: US)
  Receive Date: 20250131
  Receipt Date: 20250209
  Transmission Date: 20250408
  Serious: No
  Sender: SANOFI AVENTIS
  Company Number: US-SANOFI-02391107

PATIENT
  Age: 75 Year
  Sex: Female

DRUGS (1)
  1. ADMELOG [Suspect]
     Active Substance: INSULIN LISPRO
     Indication: Type 2 diabetes mellitus
     Dosage: 5 UNITS AM, 5 UNITS AT LUNCH ^+^ 9 UNITS PM
     Route: 065

REACTIONS (1)
  - Off label use [Unknown]
